FAERS Safety Report 4633096-2 (Version None)
Quarter: 2005Q2

REPORT INFORMATION
  Report Type: 
  Country: None (occurrence: None)
  Receive Date: 20050411
  Receipt Date: 20050411
  Transmission Date: 20051028
  Serious: No
  Sender: FDA-Public Use
  Company Number: None

PATIENT
  Age: 46 Year
  Sex: Female
  Weight: 90.7194 kg

DRUGS (5)
  1. BACLOFEN [Suspect]
     Indication: BACK PAIN
     Dosage: 20 MG 3 TIMES A DAY ORAL
     Route: 048
     Dates: start: 20050105, end: 20050404
  2. WELLBUTRIN [Suspect]
     Indication: DEPRESSION
     Dosage: 300 MG 1 TIME A DAY ORAL
     Route: 048
     Dates: start: 20050105, end: 20050120
  3. VIOXX [Concomitant]
  4. CELEBREX [Concomitant]
  5. BEXTRA [Concomitant]

REACTIONS (2)
  - CHEST PAIN [None]
  - PAIN IN EXTREMITY [None]
